FAERS Safety Report 7377597-5 (Version None)
Quarter: 2011Q1

REPORT INFORMATION
  Report Type: 
  Country: None (occurrence: None)
  Receive Date: 20110317
  Receipt Date: 20110302
  Transmission Date: 20110831
  Serious: Yes (Other)
  Sender: FDA-Public Use
  Company Number: 2011GW000146

PATIENT
  Age: 58 Year
  Sex: Male

DRUGS (5)
  1. FLUOXETINE [Suspect]
     Indication: PRODUCT USED FOR UNKNOWN INDICATION
  2. SULFAMETHOXAZOLE AND TRIMETHOPRIM [Suspect]
     Indication: PRODUCT USED FOR UNKNOWN INDICATION
  3. FLECAINIDE ACETATE [Suspect]
     Indication: ARRHYTHMIA
     Dosage: 100 MG;BID;PO
     Route: 048
  4. DILTIAZEM [Suspect]
     Indication: ARRHYTHMIA
     Dosage: 240 MG;QD
  5. AZITHROMYCIN [Suspect]
     Indication: PRODUCT USED FOR UNKNOWN INDICATION

REACTIONS (7)
  - ATRIOVENTRICULAR BLOCK FIRST DEGREE [None]
  - RIGHT ATRIAL DILATATION [None]
  - ELECTROCARDIOGRAM QT PROLONGED [None]
  - LEFT ATRIAL DILATATION [None]
  - ELECTROCARDIOGRAM REPOLARISATION ABNORMALITY [None]
  - ELECTROCARDIOGRAM T WAVE ABNORMAL [None]
  - DILATATION VENTRICULAR [None]
